FAERS Safety Report 4585895-3 (Version None)
Quarter: 2005Q1

REPORT INFORMATION
  Report Type: 
  Country: None (occurrence: None)
  Receive Date: 20050217
  Receipt Date: 20050207
  Transmission Date: 20050727
  Serious: Yes (Other)
  Sender: FDA-Public Use
  Company Number: 2005JP000011

PATIENT
  Age: 26 Year
  Sex: Male

DRUGS (1)
  1. CEFAZOLIN [Suspect]
     Indication: ILL-DEFINED DISORDER
     Dosage: 1G PER DAY
     Route: 042
     Dates: start: 20041014

REACTIONS (3)
  - ALANINE AMINOTRANSFERASE INCREASED [None]
  - ASPARTATE AMINOTRANSFERASE INCREASED [None]
  - HEPATIC FUNCTION ABNORMAL [None]
